FAERS Safety Report 17655586 (Version 2)
Quarter: 2021Q2

REPORT INFORMATION
  Report Type: Spontaneous
  Country: US (occurrence: US)
  Receive Date: 20200410
  Receipt Date: 20210520
  Transmission Date: 20210716
  Serious: No
  Sender: FDA-Public Use
  Company Number: US-PFIZER INC-2020149007

PATIENT
  Age: 61 Year
  Sex: Male

DRUGS (1)
  1. PREGABALIN. [Suspect]
     Active Substance: PREGABALIN
     Indication: RIB FRACTURE
     Dosage: 300 MG, 3X/DAY
     Route: 048

REACTIONS (3)
  - Off label use [Unknown]
  - Prescribed overdose [Unknown]
  - Formication [Unknown]
